FAERS Safety Report 7690741-5 (Version None)
Quarter: 2011Q3

REPORT INFORMATION
  Report Type: 
  Country: None (occurrence: None)
  Receive Date: 20110818
  Receipt Date: 20110810
  Transmission Date: 20111222
  Serious: Yes (Hospitalization)
  Sender: FDA-Public Use
  Company Number: US-ASTELLAS-2011US004882

PATIENT
  Age: 70 Year
  Sex: Female

DRUGS (1)
  1. LEXISCAN [Suspect]
     Indication: SCAN MYOCARDIAL PERFUSION
     Dosage: UNK
     Route: 042
     Dates: start: 20110808, end: 20110808

REACTIONS (5)
  - INCOHERENT [None]
  - HEART RATE DECREASED [None]
  - CARDIAC ARREST [None]
  - HEART RATE INCREASED [None]
  - SINUS ARREST [None]
